FAERS Safety Report 25262995 (Version 1)
Quarter: 2025Q2

REPORT INFORMATION
  Report Type: Spontaneous
  Country: US (occurrence: None)
  Receive Date: 20250501
  Receipt Date: 20250501
  Transmission Date: 20250717
  Serious: Yes (Hospitalization)
  Sender: FDA-CTU
  Company Number: None

PATIENT
  Age: 68 Year
  Sex: Male
  Weight: 284 kg

DRUGS (1)
  1. EMPAGLIFLOZIN [Suspect]
     Active Substance: EMPAGLIFLOZIN
     Indication: Diabetes mellitus
     Dosage: FREQUENCY : DAILY;?
     Route: 048
     Dates: start: 20240703, end: 20240726

REACTIONS (6)
  - Dizziness [None]
  - Headache [None]
  - Pain [None]
  - Asthenia [None]
  - Cerebrovascular accident [None]
  - Diabetic ketoacidosis [None]

NARRATIVE: CASE EVENT DATE: 20240726
